FAERS Safety Report 21403321 (Version 1)
Quarter: 2022Q4

REPORT INFORMATION
  Report Type: Spontaneous
  Country: US (occurrence: US)
  Receive Date: 20221003
  Receipt Date: 20221003
  Transmission Date: 20230113
  Serious: No
  Sender: FDA-Public Use
  Company Number: None

PATIENT
  Age: 46 Year
  Sex: Female
  Weight: 122.02 kg

DRUGS (5)
  1. VASCEPA [Suspect]
     Active Substance: ICOSAPENT ETHYL
     Indication: Blood cholesterol increased
     Dosage: FREQUENCY TEXT : TWICE DAILY
     Route: 048
     Dates: start: 201912, end: 202101
  2. VASCEPA [Suspect]
     Active Substance: ICOSAPENT ETHYL
     Dosage: FREQUENCY TEXT : DAILY
     Route: 048
     Dates: start: 202106
  3. TRAMADOL [Concomitant]
     Active Substance: TRAMADOL
     Indication: Neuralgia
  4. MONTELUKAST [Concomitant]
     Active Substance: MONTELUKAST SODIUM
     Indication: Asthma
     Dosage: FREQUENCY TEXT : NIGHTLY
  5. ALBUTEROL [Concomitant]
     Active Substance: ALBUTEROL
     Indication: Asthma
     Route: 055

REACTIONS (5)
  - Myalgia [Unknown]
  - Prescribed underdose [Unknown]
  - Therapy interrupted [Recovered/Resolved]
  - Product storage error [Unknown]
  - Product odour abnormal [Unknown]

NARRATIVE: CASE EVENT DATE: 20210101
